FAERS Safety Report 5022240-3 (Version None)
Quarter: 2006Q2

REPORT INFORMATION
  Report Type: 
  Country: None (occurrence: None)
  Receive Date: 20060609
  Receipt Date: 20060605
  Transmission Date: 20061013
  Serious: Yes (Hospitalization)
  Sender: FDA-Public Use
  Company Number: 2006CG00991

PATIENT
  Age: 59 Year
  Sex: Female

DRUGS (6)
  1. TENORMIN [Suspect]
     Route: 048
  2. TAMOXIFENE CITRATE [Suspect]
     Route: 048
  3. KAYEXALATE [Suspect]
     Route: 048
  4. HYDROCORTISONE [Suspect]
     Route: 048
  5. RENAGEL [Suspect]
     Route: 048
  6. NEURONTIN [Suspect]
     Route: 048

REACTIONS (3)
  - ANAEMIA MACROCYTIC [None]
  - LEUKOPENIA [None]
  - NEUTROPENIA [None]
